FAERS Safety Report 9302697 (Version 1)
Quarter: 2013Q2

REPORT INFORMATION
  Report Type: Spontaneous
  Country: CH (occurrence: CH)
  Receive Date: 20130522
  Receipt Date: 20130522
  Transmission Date: 20140414
  Serious: Yes (Hospitalization)
  Sender: FDA-Public Use
  Company Number: PHHY2013CH049651

PATIENT
  Age: 50 Year
  Sex: Female

DRUGS (7)
  1. LEPONEX [Suspect]
     Indication: SCHIZOPHRENIA
     Dosage: 0.5 DF, UNK (100 MG TABLET)
     Route: 048
  2. LEPONEX [Interacting]
     Dosage: 50-0-75 MG/D (25 MG TABLET)
  3. PARAPLATIN [Interacting]
     Indication: BRONCHIAL DISORDER
     Dosage: 900 MG, UNK
     Route: 041
     Dates: start: 20121001, end: 20121204
  4. ETOPOPHOS [Interacting]
     Indication: BRONCHIAL DISORDER
     Route: 041
     Dates: start: 20121001, end: 20121204
  5. CALCIMAGON [Concomitant]
  6. CHEMOTHERAPEUTICS [Concomitant]
     Route: 042
  7. OXYGEN [Concomitant]

REACTIONS (5)
  - Febrile neutropenia [Recovered/Resolved]
  - C-reactive protein increased [Recovered/Resolved]
  - Pancytopenia [Recovering/Resolving]
  - Thrombocytopenia [Recovered/Resolved]
  - Anaemia [Recovered/Resolved]
